FAERS Safety Report 20582269 (Version 1)
Quarter: 2022Q1

REPORT INFORMATION
  Report Type: Report from Study
  Country: IE (occurrence: IE)
  Receive Date: 20220311
  Receipt Date: 20220311
  Transmission Date: 20220423
  Serious: Yes (Hospitalization)
  Sender: FDA-Public Use
  Company Number: IE-AstraZeneca-2022A024108

PATIENT
  Age: 0 Year
  Sex: Male

DRUGS (5)
  1. SYNAGIS [Suspect]
     Active Substance: PALIVIZUMAB
     Indication: Premature baby
     Route: 030
     Dates: start: 20211109
  2. SYNAGIS [Suspect]
     Active Substance: PALIVIZUMAB
     Route: 030
     Dates: start: 20211214
  3. SYNAGIS [Suspect]
     Active Substance: PALIVIZUMAB
     Route: 030
     Dates: start: 20220111
  4. VITAMINS [Concomitant]
     Active Substance: VITAMINS
     Route: 065
  5. IRON [Concomitant]
     Active Substance: IRON
     Route: 065

REACTIONS (4)
  - Respiratory syncytial virus infection [Recovered/Resolved]
  - Tachycardia [Recovered/Resolved]
  - Cough [Recovered/Resolved]
  - Poor feeding infant [Recovered/Resolved]

NARRATIVE: CASE EVENT DATE: 20211216
